FAERS Safety Report 6186593-5 (Version None)
Quarter: 2009Q2

REPORT INFORMATION
  Report Type: 
  Country: None (occurrence: None)
  Receive Date: 20090507
  Receipt Date: 20090507
  Transmission Date: 20091009
  Serious: Yes (Life-Threatening)
  Sender: FDA-Public Use
  Company Number: None

PATIENT
  Age: 1 Month
  Sex: Female
  Weight: 3.66 kg

DRUGS (1)
  1. ONDANSETRON ORAL SOLUTIONS 4 MG PER 5 ML PLIVA [Suspect]
     Indication: VOMITING
     Dosage: 2 MG ONE TIME PO
     Route: 048
     Dates: start: 20090505, end: 20090505

REACTIONS (5)
  - DYSPNOEA [None]
  - LIVEDO RETICULARIS [None]
  - RASH [None]
  - RESPIRATORY DISORDER [None]
  - UNEVALUABLE EVENT [None]
